FAERS Safety Report 4771088-3 (Version None)
Quarter: 2005Q3

REPORT INFORMATION
  Report Type: 
  Country: None (occurrence: None)
  Receive Date: 20050914
  Receipt Date: 20050902
  Transmission Date: 20060218
  Serious: Yes (Disabling, Other)
  Sender: FDA-Public Use
  Company Number: 2005113290

PATIENT
  Age: 84 Year
  Sex: Male
  Weight: 63.5036 kg

DRUGS (12)
  1. DILANTIN [Suspect]
     Indication: CONVULSION
     Dosage: 100 MG (100 MG, 1 IN 1 D), ORAL
     Route: 048
     Dates: start: 20050720, end: 20050730
  2. NITROGLYCERIN [Concomitant]
  3. OXYBUTYNIN CHLORIDE [Concomitant]
  4. LISINOPRIL [Concomitant]
  5. ARICEPT [Concomitant]
  6. RANITIDINE HCL [Concomitant]
  7. ASPIRIN [Concomitant]
  8. ACETAMINOPHEN [Concomitant]
  9. FUROSEMIDE [Concomitant]
  10. OMEPRAZOLE [Concomitant]
  11. DONEPEZIL HCL [Concomitant]
  12. TYLENOL (PARACETAMOL) [Concomitant]

REACTIONS (4)
  - ACTIVITIES OF DAILY LIVING IMPAIRED [None]
  - GAIT DISTURBANCE [None]
  - HALLUCINATION, VISUAL [None]
  - SOMNOLENCE [None]
